FAERS Safety Report 17016147 (Version 1)
Quarter: 2019Q4

REPORT INFORMATION
  Report Type: Spontaneous
  Country: US (occurrence: US)
  Receive Date: 20191003
  Receipt Date: 20191003
  Transmission Date: 20200122
  Serious: Yes (Other)
  Sender: FDA-Public Use
  Company Number: None

PATIENT
  Age: 76 Year
  Sex: Female
  Weight: 58.97 kg

DRUGS (12)
  1. ONDANSETRON [Concomitant]
     Active Substance: ONDANSETRON
  2. TUMERIC [Concomitant]
     Active Substance: HERBALS\TURMERIC
  3. LANTUS [Concomitant]
     Active Substance: INSULIN GLARGINE
  4. SYNTHROID [Concomitant]
     Active Substance: LEVOTHYROXINE SODIUM
  5. PROCHLORPENIZINE 10MG [Concomitant]
  6. HERBAL OILS [Concomitant]
  7. LYNPARZA [Suspect]
     Active Substance: OLAPARIB
     Indication: BRCA2 GENE MUTATION
     Route: 048
     Dates: start: 20190601, end: 20190905
  8. WOMEN^S MULTI VITAMIN [Concomitant]
  9. FRANKINCESE [Concomitant]
  10. LOSARTAN. [Concomitant]
     Active Substance: LOSARTAN
  11. RANITIDINE. [Concomitant]
     Active Substance: RANITIDINE
  12. LYNPARZA [Suspect]
     Active Substance: OLAPARIB
     Indication: OVARIAN CANCER
     Route: 048
     Dates: start: 20190601, end: 20190905

REACTIONS (13)
  - Pyrexia [None]
  - Haematochezia [None]
  - Influenza like illness [None]
  - Decreased appetite [None]
  - Renal impairment [None]
  - Carbohydrate antigen 125 increased [None]
  - Tumour compression [None]
  - Drug ineffective [None]
  - Neoplasm progression [None]
  - Fatigue [None]
  - Constipation [None]
  - Chills [None]
  - Urine analysis abnormal [None]

NARRATIVE: CASE EVENT DATE: 20190718
